FAERS Safety Report 9124660 (Version 1)
Quarter: 2013Q1

REPORT INFORMATION
  Report Type: Report from Study
  Country: US (occurrence: US)
  Receive Date: 20130227
  Receipt Date: 20130227
  Transmission Date: 20140127
  Serious: Yes (Other)
  Sender: FDA-Public Use
  Company Number: US-MSD-1207USA010041

PATIENT
  Age: 82 Year
  Sex: 0

DRUGS (3)
  1. PEGINTRON [Suspect]
     Indication: GASTROINTESTINAL STROMAL TUMOUR
     Dosage: 4 MICROGRAM PER KILOGRAM, QW
  2. PEGINTRON [Suspect]
     Dosage: 3 MICROGRAM PER KILOGRAM, QW
  3. GLEEVEC [Concomitant]

REACTIONS (3)
  - Neutropenia [Unknown]
  - Pyrexia [Unknown]
  - Influenza like illness [Unknown]
